FAERS Safety Report 23196855 (Version 1)
Quarter: 2023Q4

REPORT INFORMATION
  Report Type: Spontaneous
  Country: JP (occurrence: JP)
  Receive Date: 20231117
  Receipt Date: 20231117
  Transmission Date: 20240109
  Serious: Yes (Other)
  Sender: FDA-Public Use
  Company Number: JP-PFIZER INC-202300359715

PATIENT
  Sex: Female

DRUGS (1)
  1. TOVIAZ [Suspect]
     Active Substance: FESOTERODINE FUMARATE
     Indication: Hypertonic bladder
     Route: 048

REACTIONS (5)
  - Fall [Unknown]
  - Muscular weakness [Unknown]
  - Dizziness [Unknown]
  - Asthenia [Unknown]
  - Drug ineffective [Unknown]
